FAERS Safety Report 7880751-7 (Version None)
Quarter: 2011Q4

REPORT INFORMATION
  Report Type: 
  Country: None (occurrence: None)
  Receive Date: 20111101
  Receipt Date: 20111024
  Transmission Date: 20120403
  Serious: No
  Sender: FDA-Public Use
  Company Number: US-B.I. PHARMACEUTICALS,INC./RIDGEFIELD-2011-BP-21010BP

PATIENT
  Sex: Male

DRUGS (11)
  1. PRADAXA [Suspect]
     Indication: ATRIAL FIBRILLATION
     Dosage: 300 MG
     Route: 048
     Dates: start: 20110301, end: 20110601
  2. TEMPAZEM [Concomitant]
  3. FLOMAX [Concomitant]
     Indication: PROSTATOMEGALY
     Route: 048
  4. PRADAXA [Suspect]
     Indication: ANTICOAGULANT THERAPY
     Dosage: 300 MG
     Route: 048
     Dates: start: 20110601, end: 20110801
  5. LORAZEPAM [Concomitant]
     Indication: SLEEP DISORDER
     Route: 048
  6. ATENOLOL [Concomitant]
  7. LISINOPRIL [Concomitant]
     Indication: HYPERTENSION
     Route: 048
  8. DIGOXIN [Concomitant]
  9. TYLENOL-500 [Concomitant]
  10. QUINAPRIL [Concomitant]
  11. COUMADIN [Concomitant]

REACTIONS (6)
  - PETECHIAE [None]
  - HAEMORRHAGE SUBCUTANEOUS [None]
  - PURPURA [None]
  - PROTHROMBIN TIME PROLONGED [None]
  - RASH MACULAR [None]
  - HAEMORRHAGE [None]
